FAERS Safety Report 11324616 (Version 1)
Quarter: 2015Q3

REPORT INFORMATION
  Report Type: Report from Study
  Country: BR (occurrence: BR)
  Receive Date: 20150730
  Receipt Date: 20150730
  Transmission Date: 20151125
  Serious: Yes (Other)
  Sender: FDA-Public Use
  Company Number: BR-BRISTOL-MYERS SQUIBB COMPANY-21649355

PATIENT
  Sex: Female

DRUGS (5)
  1. PARACETAMOL [Concomitant]
     Active Substance: ACETAMINOPHEN
     Indication: CANCER PAIN
     Dosage: UNK, Q6H
     Route: 065
  2. OMEPRAZOLE. [Concomitant]
     Active Substance: OMEPRAZOLE
     Indication: PRODUCT USED FOR UNKNOWN INDICATION
     Dosage: 20 MG, UNK
     Route: 065
  3. CETUXIMAB [Suspect]
     Active Substance: CETUXIMAB
     Indication: COLORECTAL CANCER
     Dosage: UNK, Q2WK
     Route: 065
  4. TRAMOL                             /00020001/ [Concomitant]
     Indication: CANCER PAIN
     Dosage: 1 DF, Q12H
     Route: 065
  5. CETUXIMAB [Suspect]
     Active Substance: CETUXIMAB
     Dosage: UNK, Q3WK
     Route: 065

REACTIONS (11)
  - Dry eye [Not Recovered/Not Resolved]
  - Skin reaction [Recovering/Resolving]
  - Nausea [Unknown]
  - Bacterial infection [Recovering/Resolving]
  - Abdominal distension [Unknown]
  - Muscle spasms [Unknown]
  - Dysgeusia [Unknown]
  - Anaemia [Unknown]
  - Platelet disorder [Recovered/Resolved]
  - Visual impairment [Not Recovered/Not Resolved]
  - Decreased appetite [Unknown]
